FAERS Safety Report 13384149 (Version 1)
Quarter: 2017Q1

REPORT INFORMATION
  Report Type: Spontaneous
  Country: US (occurrence: US)
  Receive Date: 20170329
  Receipt Date: 20170329
  Transmission Date: 20170429
  Serious: No
  Sender: FDA-Public Use
  Company Number: US-MYLANLABS-2016M1010182

PATIENT
  Sex: Female

DRUGS (5)
  1. EMSAM [Suspect]
     Active Substance: SELEGILINE
     Dosage: 12 MG, QD
     Route: 062
  2. EMSAM [Suspect]
     Active Substance: SELEGILINE
     Indication: OBSESSIVE-COMPULSIVE DISORDER
     Dosage: 6 MG, QD
     Route: 062
  3. EMSAM [Suspect]
     Active Substance: SELEGILINE
     Indication: DEPRESSION
  4. EMSAM [Suspect]
     Active Substance: SELEGILINE
     Indication: OBSESSIVE-COMPULSIVE DISORDER
     Dosage: 12 MG, QD
     Route: 062
  5. EMSAM [Suspect]
     Active Substance: SELEGILINE
     Indication: DEPRESSION
     Dosage: 9 MG, QD
     Route: 062

REACTIONS (1)
  - Drug ineffective [Unknown]
